FAERS Safety Report 4511119-9 (Version None)
Quarter: 2004Q4

REPORT INFORMATION
  Report Type: 
  Country: None (occurrence: None)
  Receive Date: 20041012
  Receipt Date: 20040728
  Transmission Date: 20050328
  Serious: No
  Sender: FDA-Public Use
  Company Number: PHEH2004US08184

PATIENT
  Age: 10 Month
  Sex: Male

DRUGS (2)
  1. ELIDEL [Suspect]
     Indication: ECZEMA
     Dosage: QD, TOPICAL
     Route: 061
     Dates: start: 20040727
  2. ZITHROMAX [Concomitant]

REACTIONS (1)
  - EYELID OEDEMA [None]
